FAERS Safety Report 5472807-3 (Version None)
Quarter: 2007Q4

REPORT INFORMATION
  Report Type: 
  Country: None (occurrence: None)
  Receive Date: 20071001
  Receipt Date: 20070209
  Transmission Date: 20080405
  Serious: No
  Sender: FDA-Public Use
  Company Number: US-ASTRAZENECA-2007UW00148

PATIENT
  Age: 60 Year
  Sex: Female

DRUGS (4)
  1. ARIMIDEX [Suspect]
     Indication: BREAST CANCER
     Route: 048
  2. ZETIA [Concomitant]
  3. LIPITOR [Concomitant]
  4. MICARDIS [Concomitant]

REACTIONS (3)
  - BACK PAIN [None]
  - DRY EYE [None]
  - WEIGHT INCREASED [None]
